FAERS Safety Report 17568518 (Version 3)
Quarter: 2020Q2

REPORT INFORMATION
  Report Type: Spontaneous
  Country: US (occurrence: US)
  Receive Date: 20200320
  Receipt Date: 20200401
  Transmission Date: 20200713
  Serious: Yes (Hospitalization)
  Sender: FDA-Public Use
  Company Number: US-ACTELION-A-NJ2020-201106

PATIENT
  Age: 76 Year
  Sex: Male
  Weight: 76.19 kg

DRUGS (5)
  1. UPTRAVI [Suspect]
     Active Substance: SELEXIPAG
     Indication: PULMONARY ARTERIAL HYPERTENSION
     Dosage: 800 MCG, BID
     Route: 048
  2. UPTRAVI [Suspect]
     Active Substance: SELEXIPAG
     Dosage: 1600 MCG, BID
     Route: 048
  3. REMODULIN [Concomitant]
     Active Substance: TREPROSTINIL
     Route: 058
  4. ELIQUIS [Concomitant]
     Active Substance: APIXABAN
  5. AMLODIPINE [Concomitant]
     Active Substance: AMLODIPINE BESYLATE

REACTIONS (10)
  - Therapy non-responder [Unknown]
  - Pulmonary hypertension [Unknown]
  - Condition aggravated [Unknown]
  - Body temperature decreased [Unknown]
  - Gastrointestinal disorder [Unknown]
  - Pulmonary arterial pressure increased [Unknown]
  - Dyspnoea [Unknown]
  - Chest pain [Unknown]
  - Hypotension [Unknown]
  - Dyspnoea exertional [Unknown]

NARRATIVE: CASE EVENT DATE: 20200309
